FAERS Safety Report 8806588 (Version 1)
Quarter: 2012Q4

REPORT INFORMATION
  Report Type: 
  Country: US (occurrence: US)
  Receive Date: 20120925
  Receipt Date: 20120925
  Transmission Date: 20130627
  Serious: Yes (Hospitalization)
  Sender: FDA-Public Use
  Company Number: US-BAYER-2012-098632

PATIENT
  Age: 28 Year
  Sex: Female

DRUGS (6)
  1. NAPROXEN SODIUM ({= 220 MG) [Suspect]
     Dosage: 375 mg, PRN
  2. AMITRIPTYLINE [Suspect]
     Dosage: 125 mg, UNK
  3. AMITRIPTYLINE [Suspect]
  4. OXYCODONE W/PARACETAMOL [Concomitant]
     Dosage: 5/325 mg, PRN
  5. DIAZEPAM [Concomitant]
     Dosage: 5 mg, UNK
  6. LORAZEPAM [Concomitant]

REACTIONS (7)
  - Vomiting [Recovered/Resolved]
  - Dehydration [Recovered/Resolved]
  - Weight decreased [Recovered/Resolved]
  - Anxiety [Recovered/Resolved]
  - Back pain [Recovered/Resolved]
  - Apathy [Recovered/Resolved]
  - Maternal exposure during pregnancy [None]
